FAERS Safety Report 16756438 (Version 7)
Quarter: 2021Q1

REPORT INFORMATION
  Report Type: Report from Study
  Country: US (occurrence: US)
  Receive Date: 20190829
  Receipt Date: 20210309
  Transmission Date: 20210419
  Serious: Yes (Hospitalization, Other)
  Sender: FDA-Public Use
  Company Number: PHEH2019US035884

PATIENT
  Age: 84 Year
  Sex: Female
  Weight: 56.69 kg

DRUGS (3)
  1. TREPROSTINIL. [Suspect]
     Active Substance: TREPROSTINIL
     Dosage: UNK (78 NG/KG/MIN) CONTINUOUS
     Route: 042
     Dates: start: 20190430
  2. REMODULIN [Concomitant]
     Active Substance: TREPROSTINIL
     Indication: PRODUCT USED FOR UNKNOWN INDICATION
     Dosage: UNK
     Route: 041
  3. TREPROSTINIL. [Suspect]
     Active Substance: TREPROSTINIL
     Indication: PULMONARY ARTERIAL HYPERTENSION
     Dosage: UNK (86 NG/KG/MIN, CONTINUOUS)
     Route: 042
     Dates: start: 20190430

REACTIONS (7)
  - COVID-19 [Unknown]
  - Dyspnoea [Unknown]
  - Dry throat [Unknown]
  - Upper limb fracture [Unknown]
  - Diarrhoea [Unknown]
  - Fluid overload [Unknown]
  - Cough [Unknown]

NARRATIVE: CASE EVENT DATE: 20200903
